FAERS Safety Report 14596351 (Version 2)
Quarter: 2018Q1

REPORT INFORMATION
  Report Type: Spontaneous
  Country: PL (occurrence: PL)
  Receive Date: 20180303
  Receipt Date: 20180309
  Transmission Date: 20180509
  Serious: Yes (Hospitalization, Other)
  Sender: FDA-Public Use
  Company Number: PL-AUROBINDO-AUR-APL-2018-010661

PATIENT
  Sex: Male

DRUGS (3)
  1. VALSARTAN+HYDROCHLOROTHIAZIDE 160/12.5MG [Suspect]
     Active Substance: HYDROCHLOROTHIAZIDE\VALSARTAN
     Dosage: 160 MILLIGRAM
  2. ATORVASTATIN [Suspect]
     Active Substance: ATORVASTATIN
     Dosage: 20 MILLIGRAM
  3. VALSARTAN+HYDROCHLOROTHIAZIDE 160/12.5MG [Suspect]
     Active Substance: HYDROCHLOROTHIAZIDE\VALSARTAN
     Dosage: 12.5 MILLIGRAM

REACTIONS (2)
  - Acute kidney injury [Recovered/Resolved with Sequelae]
  - Rhabdomyolysis [Unknown]
